FAERS Safety Report 11932283 (Version 4)
Quarter: 2016Q3

REPORT INFORMATION
  Report Type: Spontaneous
  Country: US (occurrence: US)
  Receive Date: 20160120
  Receipt Date: 20160705
  Transmission Date: 20161109
  Serious: Yes (Hospitalization, Other)
  Sender: FDA-Public Use
  Company Number: US-PFIZER INC-2016007002

PATIENT
  Age: 50 Year
  Sex: Female
  Weight: 59 kg

DRUGS (4)
  1. DEXILANT [Concomitant]
     Active Substance: DEXLANSOPRAZOLE
     Indication: GASTROOESOPHAGEAL REFLUX DISEASE
     Dosage: 60 MG, 1X/DAY
  2. DILANTIN [Suspect]
     Active Substance: PHENYTOIN
     Indication: SEIZURE
     Dosage: UNK
     Dates: start: 1992
  3. DILANTIN [Suspect]
     Active Substance: PHENYTOIN
     Dosage: 100 MG, 4X/DAY
     Route: 048
  4. HYDROCODONE [Concomitant]
     Active Substance: HYDROCODONE
     Indication: BACK PAIN
     Dosage: 10 MG, 3X/DAY

REACTIONS (3)
  - Upper limb fracture [Recovered/Resolved]
  - Road traffic accident [Recovered/Resolved]
  - Hypertension [Unknown]

NARRATIVE: CASE EVENT DATE: 20021022
